FAERS Safety Report 23633476 (Version 3)
Quarter: 2024Q1

REPORT INFORMATION
  Report Type: Report from Study
  Country: CO (occurrence: CO)
  Receive Date: 20240314
  Receipt Date: 20240326
  Transmission Date: 20240410
  Serious: Yes (Hospitalization)
  Sender: FDA-Public Use
  Company Number: CO-SA-SAC20240313000609

PATIENT
  Age: 22 Year
  Sex: Female
  Weight: 60 kg

DRUGS (6)
  1. ALEMTUZUMAB [Suspect]
     Active Substance: ALEMTUZUMAB
     Indication: Multiple sclerosis
     Dosage: 12 MG, QD
     Route: 042
     Dates: start: 20240311, end: 20240318
  2. ACETAMINOPHEN [Concomitant]
     Active Substance: ACETAMINOPHEN
     Indication: Premedication
     Dosage: 2 DF (TABLETS)
  3. LORATADINE [Concomitant]
     Active Substance: LORATADINE
     Indication: Premedication
     Dosage: UNK
  4. METHYLPREDNISOLONE [Concomitant]
     Active Substance: METHYLPREDNISOLONE
     Indication: Premedication
     Dosage: UNK
  5. ACYCLOVIR [Concomitant]
     Active Substance: ACYCLOVIR
     Indication: Premedication
     Dosage: UNK
  6. TRIMICORT [Concomitant]
     Indication: Psoriasis
     Dosage: UNK, QD

REACTIONS (8)
  - Vision blurred [Recovered/Resolved]
  - Eye movement disorder [Recovered/Resolved]
  - Pupillary reflex impaired [Unknown]
  - Tremor [Recovered/Resolved]
  - Blood pressure increased [Recovered/Resolved]
  - Headache [Recovered/Resolved]
  - Dizziness [Unknown]
  - Tachycardia [Unknown]

NARRATIVE: CASE EVENT DATE: 20240301
